FAERS Safety Report 9846602 (Version 1)
Quarter: 2014Q1

REPORT INFORMATION
  Report Type: Spontaneous
  Country: US (occurrence: US)
  Receive Date: 20140127
  Receipt Date: 20140127
  Transmission Date: 20141002
  Serious: Yes (Death)
  Sender: FDA-Public Use
  Company Number: US-GLAXOSMITHKLINE-A1058222A

PATIENT
  Age: 62 Year
  Sex: Female

DRUGS (16)
  1. VOTRIENT [Suspect]
     Indication: RENAL CANCER
     Dosage: 800MG PER DAY
     Route: 048
  2. COMPAZINE [Concomitant]
  3. PREDNISONE [Concomitant]
  4. PRILOSEC [Concomitant]
  5. SYNTHROID [Concomitant]
  6. IMDUR [Concomitant]
  7. HUMALOG [Concomitant]
  8. LANTUS [Concomitant]
  9. NORCO [Concomitant]
  10. LASIX [Concomitant]
  11. LOFIBRA (FENOFIBRATE) [Concomitant]
  12. VITAMIN D [Concomitant]
  13. COREG [Concomitant]
  14. WELLBUTRIN [Concomitant]
  15. LIPITOR [Concomitant]
  16. ASPIRIN [Concomitant]

REACTIONS (1)
  - Death [Fatal]
